FAERS Safety Report 4384515-0 (Version None)
Quarter: 2004Q2

REPORT INFORMATION
  Report Type: 
  Country: None (occurrence: None)
  Receive Date: 20040610
  Receipt Date: 20040329
  Transmission Date: 20050107
  Serious: No
  Sender: FDA-Public Use
  Company Number: US-JNJFOC-20040203000

PATIENT
  Age: 75 Year
  Sex: Male
  Weight: 82.1 kg

DRUGS (6)
  1. NATRECOR [Suspect]
     Indication: CARDIAC FAILURE CONGESTIVE
     Dosage: 6 UG/ML, INTRAVENOUS
     Route: 042
     Dates: start: 20040210, end: 20040212
  2. FUROSEMIDE [Suspect]
     Indication: CARDIAC FAILURE CONGESTIVE
     Dosage: 40 MG, 2 IN 1 DAY, INTRAVENOUS
     Route: 042
     Dates: start: 20040210, end: 20040212
  3. AMIODARONE HCL [Concomitant]
  4. FLOMAX [Concomitant]
  5. LISINOPRIL [Concomitant]
  6. THEO-DUR [Concomitant]

REACTIONS (2)
  - MEDICATION ERROR [None]
  - OEDEMA PERIPHERAL [None]
